FAERS Safety Report 9433673 (Version 1)
Quarter: 2013Q3

REPORT INFORMATION
  Report Type: Spontaneous
  Country: CA (occurrence: CA)
  Receive Date: 20130731
  Receipt Date: 20130731
  Transmission Date: 20140515
  Serious: Yes (Other)
  Sender: FDA-Public Use
  Company Number: CA-BAXTER-2013BAX029499

PATIENT
  Age: 49 Year
  Sex: Male

DRUGS (3)
  1. DIANEAL PD4 SOLUTION WITH 1.5% DEXTROSE AND 2.5 MEQ/L CALCIUM [Suspect]
     Indication: PERITONEAL DIALYSIS
     Route: 033
  2. DIANEAL PD4 SOLUTION WITH 2.5% DEXTROSE AND 2.5 MEQ/L CALCIUM [Suspect]
     Indication: PERITONEAL DIALYSIS
     Route: 033
  3. EXTRANEAL [Suspect]
     Indication: PERITONEAL DIALYSIS
     Route: 033

REACTIONS (10)
  - Memory impairment [Unknown]
  - Condition aggravated [Unknown]
  - Lung infection [Unknown]
  - General physical health deterioration [Unknown]
  - Multiple fractures [Unknown]
  - Pneumonia [Unknown]
  - Pulmonary oedema [Unknown]
  - Stress [Unknown]
  - Aphagia [Unknown]
  - Weight decreased [Unknown]
